FAERS Safety Report 11626539 (Version 1)
Quarter: 2015Q4

REPORT INFORMATION
  Report Type: Report from Study
  Country: IE (occurrence: IE)
  Receive Date: 20151013
  Receipt Date: 20151013
  Transmission Date: 20160304
  Serious: Yes (Death, Other)
  Sender: FDA-Public Use
  Company Number: IE-INCYTE CORPORATION-2015IN005043

PATIENT
  Age: 69 Year
  Sex: Male

DRUGS (3)
  1. JAKAFI [Suspect]
     Active Substance: RUXOLITINIB
     Indication: MYELOFIBROSIS
     Dosage: 10 MG, BID
     Route: 065
  2. ALLOPURINOL. [Concomitant]
     Active Substance: ALLOPURINOL
     Indication: GOUT
     Route: 065
  3. JAKAFI [Suspect]
     Active Substance: RUXOLITINIB
     Dosage: 5 MG
     Route: 065

REACTIONS (5)
  - Thrombocytopenia [Fatal]
  - Myelofibrosis [Fatal]
  - Haemorrhage [Unknown]
  - Anaemia [Fatal]
  - Contusion [Unknown]
